FAERS Safety Report 12729368 (Version 1)
Quarter: 2016Q3

REPORT INFORMATION
  Report Type: Spontaneous
  Country: US (occurrence: US)
  Receive Date: 20160908
  Receipt Date: 20160908
  Transmission Date: 20161109
  Serious: Yes (Other)
  Sender: FDA-Public Use
  Company Number: None

PATIENT
  Age: 45 Year
  Sex: Male
  Weight: 99.7 kg

DRUGS (7)
  1. OXALIPLATIN. [Suspect]
     Active Substance: OXALIPLATIN
     Indication: COLON CANCER
     Dosage: OTHER STRENGTH:;OTHER DOSE:;OTHER FREQUENCY:Q 2 WEEKS;OTHER ROUTE:
     Route: 041
  2. DECADRON [Concomitant]
     Active Substance: DEXAMETHASONE
  3. OXALIPLATIN. [Suspect]
     Active Substance: OXALIPLATIN
     Route: 041
  4. EMEND [Concomitant]
     Active Substance: APREPITANT
  5. BEVACIZUMAB [Concomitant]
     Active Substance: BEVACIZUMAB
  6. ALOXI [Concomitant]
     Active Substance: PALONOSETRON HYDROCHLORIDE
  7. LEUCOVORIN. [Concomitant]
     Active Substance: LEUCOVORIN

REACTIONS (2)
  - Skin tightness [None]
  - Erythema [None]

NARRATIVE: CASE EVENT DATE: 20160826
